FAERS Safety Report 9006058 (Version 1)
Quarter: 2013Q1

REPORT INFORMATION
  Report Type: Spontaneous
  Country: BR (occurrence: BR)
  Receive Date: 20130109
  Receipt Date: 20130109
  Transmission Date: 20140127
  Serious: Yes (Other)
  Sender: FDA-Public Use
  Company Number: PHHY2013BR001664

PATIENT
  Age: 58 Year
  Sex: Female

DRUGS (2)
  1. DIOVAN [Suspect]
     Indication: HYPERTENSION
     Dosage: 160 MG, DAILY
     Route: 048
  2. FORADIL / FOR 258A / CGP 25827 [Suspect]
     Indication: DYSPNOEA
     Dosage: 12 UG, DAILY

REACTIONS (1)
  - Pneumonia [Unknown]
